FAERS Safety Report 10229572 (Version 1)
Quarter: 2014Q2

REPORT INFORMATION
  Report Type: Spontaneous
  Country: US (occurrence: None)
  Receive Date: 20140610
  Receipt Date: 20140610
  Transmission Date: 20141212
  Serious: Yes (Death)
  Sender: FDA-Public Use
  Company Number: None

PATIENT
  Age: 34 Year
  Sex: Male
  Weight: 79.83 kg

DRUGS (2)
  1. ZONISAMIDE [Suspect]
     Indication: CONVULSION
     Dosage: 600 MG /6 MG PILLS PER DAY AT BEDTIME TAKEN BY MOUTH
     Route: 048
     Dates: start: 20120401, end: 20140511
  2. ZONISAMIDE [Suspect]
     Indication: PROPHYLAXIS
     Dosage: 600 MG /6 MG PILLS PER DAY AT BEDTIME TAKEN BY MOUTH
     Route: 048
     Dates: start: 20120401, end: 20140511

REACTIONS (6)
  - Paranoia [None]
  - Anxiety [None]
  - Completed suicide [None]
  - Physical product label issue [None]
  - Therapy change [None]
  - Drug prescribing error [None]
